FAERS Safety Report 6955631-1 (Version None)
Quarter: 2010Q3

REPORT INFORMATION
  Report Type: 
  Country: None (occurrence: None)
  Receive Date: 20100830
  Receipt Date: 20100819
  Transmission Date: 20110219
  Serious: Yes (Other)
  Sender: FDA-Public Use
  Company Number: AU-PFIZER INC-2010105484

PATIENT
  Age: 24 Year
  Sex: Female

DRUGS (2)
  1. CHAMPIX [Suspect]
     Indication: SMOKING CESSATION THERAPY
     Dosage: 1 MG, 2X/DAY
     Route: 048
     Dates: start: 20100705
  2. SUDAFED 12 HOUR [Interacting]
     Dosage: UNK

REACTIONS (3)
  - ALTERED STATE OF CONSCIOUSNESS [None]
  - DRUG INTERACTION [None]
  - PRESYNCOPE [None]
